FAERS Safety Report 9233305 (Version 1)
Quarter: 2013Q2

REPORT INFORMATION
  Report Type: Spontaneous
  Country: US (occurrence: US)
  Receive Date: 20130416
  Receipt Date: 20130416
  Transmission Date: 20140414
  Serious: No
  Sender: FDA-Public Use
  Company Number: US-BANPHARM-20130930

PATIENT
  Age: 70 Year
  Sex: Female
  Weight: 77.11 kg

DRUGS (4)
  1. ALEVE LIQUID GELS 220MG [Suspect]
     Indication: BACK PAIN
     Dosage: 1 DF, PRN,
     Route: 048
     Dates: start: 20120410
  2. THYROID MEDICATION [Concomitant]
     Indication: THYROID DISORDER
  3. CHOLESTEROL MEDICATION [Concomitant]
     Indication: BLOOD CHOLESTEROL
  4. DIABETIC MEDICATION [Concomitant]
     Indication: DIABETES MELLITUS

REACTIONS (1)
  - Paraesthesia [Recovered/Resolved]
